FAERS Safety Report 4979673-0 (Version None)
Quarter: 2006Q2

REPORT INFORMATION
  Report Type: 
  Country: None (occurrence: None)
  Receive Date: 20060421
  Receipt Date: 20060407
  Transmission Date: 20061013
  Serious: Yes (Other)
  Sender: FDA-Public Use
  Company Number: GBWYE542710APR06

PATIENT
  Sex: Female

DRUGS (1)
  1. ENBREL [Suspect]
     Indication: DRUG USE FOR UNKNOWN INDICATION
     Dosage: UNKNOWN

REACTIONS (6)
  - CYANOSIS [None]
  - DYSPNOEA [None]
  - HEADACHE [None]
  - PARALYSIS [None]
  - REFUSAL OF TREATMENT BY PATIENT [None]
  - SINUS DISORDER [None]
